FAERS Safety Report 8525627-7 (Version None)
Quarter: 2012Q3

REPORT INFORMATION
  Report Type: 
  Country: None (occurrence: None)
  Receive Date: 20120720
  Receipt Date: 20120709
  Transmission Date: 20120928
  Serious: Yes (Death, Other)
  Sender: FDA-Public Use
  Company Number: JP-PFIZER INC-2012162798

PATIENT
  Sex: Male

DRUGS (5)
  1. GOODMIN [Suspect]
     Dosage: 0.25 MG, 1X/DAY
     Route: 048
  2. ZOLOFT [Suspect]
     Dosage: 100 MG, 1X/DAY
     Route: 048
  3. FLUNITRAZEPAM [Suspect]
     Dosage: 2 MG, 1X/DAY
     Route: 048
  4. ZOPICLONE [Suspect]
     Dosage: 10 MG, 1X/DAY
     Route: 048
  5. VEGETAMIN B [Suspect]
     Dosage: 1 DF, 1X/DAY

REACTIONS (2)
  - DEATH [None]
  - ALCOHOL USE [None]
